FAERS Safety Report 14457281 (Version 1)
Quarter: 2018Q1

REPORT INFORMATION
  Report Type: Spontaneous
  Country: JP (occurrence: JP)
  Receive Date: 20180130
  Receipt Date: 20180130
  Transmission Date: 20180509
  Serious: Yes (Other)
  Sender: FDA-Public Use
  Company Number: PHHY2018JP013232

PATIENT
  Age: 75 Year

DRUGS (3)
  1. RIVASTACH [Suspect]
     Active Substance: RIVASTIGMINE
     Dosage: 1.9 MG, QD (PATCH 2.5, RIVASTIGMINE BASE 4.5 MG)
     Route: 062
  2. RIVASTACH [Suspect]
     Active Substance: RIVASTIGMINE
     Indication: DEMENTIA ALZHEIMER^S TYPE
     Dosage: 1.9 MG, QD (PATCH 2.5, RIVASTIGMINE BASE 4.5 MG)
     Route: 062
  3. RIVASTACH [Suspect]
     Active Substance: RIVASTIGMINE
     Dosage: GRADUALLY INCREASED (DOSE UNSPECIFIED)
     Route: 062

REACTIONS (2)
  - Glaucoma [Unknown]
  - Headache [Unknown]
